FAERS Safety Report 8873286 (Version 1)
Quarter: 2012Q4

REPORT INFORMATION
  Report Type: 
  Country: CH (occurrence: CH)
  Receive Date: 20121029
  Receipt Date: 20121029
  Transmission Date: 20130627
  Serious: Yes (Death)
  Sender: FDA-Public Use
  Company Number: PHHO2012CH015121

PATIENT
  Age: 68 Year
  Sex: Male
  Weight: 83.7 kg

DRUGS (5)
  1. ACETYLSALICYLIC ACID [Suspect]
     Dosage: 100 mg, QD
     Route: 048
     Dates: start: 2008, end: 20121012
  2. INC424 [Suspect]
     Indication: MYELOFIBROSIS
     Dosage: 15 mg, BID
     Route: 048
     Dates: start: 20120507, end: 20120921
  3. INC424 [Suspect]
     Dosage: 10 mg, BID
     Route: 048
     Dates: start: 20120922, end: 201210
  4. PHENPROCOUMON [Suspect]
     Indication: ATRIAL FIBRILLATION
     Dosage: PRN
     Dates: start: 200910, end: 20121011
  5. PANTOPRAZOLE [Concomitant]
     Indication: GASTRIC ULCER
     Dosage: 40 mg, QD
     Route: 048
     Dates: start: 1995

REACTIONS (1)
  - Mouth haemorrhage [Fatal]
